FAERS Safety Report 6836571-5 (Version None)
Quarter: 2010Q3

REPORT INFORMATION
  Report Type: 
  Country: None (occurrence: None)
  Receive Date: 20100713
  Receipt Date: 20100706
  Transmission Date: 20110219
  Serious: Yes (Hospitalization, Other)
  Sender: FDA-Public Use
  Company Number: US-GILEAD-2009-0024447

PATIENT
  Sex: Male

DRUGS (16)
  1. LETAIRIS [Suspect]
     Indication: PULMONARY ARTERIAL HYPERTENSION
     Route: 048
     Dates: start: 20090511
  2. DOPAMINE INFUSION [Suspect]
  3. PLAVIX [Concomitant]
  4. CHILDRENS ASPIRIN [Concomitant]
  5. LASIX [Concomitant]
  6. TOPROL-XL [Concomitant]
  7. SIMVASTATIN [Concomitant]
  8. AMARYL [Concomitant]
  9. ACTOS [Concomitant]
  10. FERROUS SULFATE [Concomitant]
  11. FOLIC ACID [Concomitant]
  12. DOCUSATE SODIUM [Concomitant]
  13. PROCRIT [Concomitant]
  14. LANTUS [Concomitant]
  15. SOLU-MEDROL [Concomitant]
  16. PROTONIX [Concomitant]

REACTIONS (2)
  - DIALYSIS [None]
  - RENAL IMPAIRMENT [None]
